FAERS Safety Report 22327544 (Version 2)
Quarter: 2023Q2

REPORT INFORMATION
  Report Type: Spontaneous
  Country: PL (occurrence: PL)
  Receive Date: 20230516
  Receipt Date: 20230519
  Transmission Date: 20230722
  Serious: Yes (Life-Threatening, Hospitalization, Other)
  Sender: FDA-Public Use
  Company Number: PL-PFIZER INC-202300178672

PATIENT
  Age: 2 Year
  Sex: Male

DRUGS (12)
  1. VELCADE [Suspect]
     Active Substance: BORTEZOMIB
     Indication: Plasmablastic lymphoma
     Dosage: UNK
     Route: 065
  2. VELCADE [Suspect]
     Active Substance: BORTEZOMIB
     Indication: Gastrointestinal lymphoma
  3. VINCRISTINE [Suspect]
     Active Substance: VINCRISTINE
     Indication: Plasmablastic lymphoma
     Dosage: UNK
     Route: 065
  4. VINCRISTINE [Suspect]
     Active Substance: VINCRISTINE
     Indication: Gastrointestinal lymphoma
  5. PREDNISONE [Suspect]
     Active Substance: PREDNISONE
     Indication: Plasmablastic lymphoma
     Dosage: UNK
     Route: 065
  6. PREDNISONE [Suspect]
     Active Substance: PREDNISONE
     Indication: Gastrointestinal lymphoma
  7. ETOPOSIDE [Suspect]
     Active Substance: ETOPOSIDE
     Indication: Plasmablastic lymphoma
     Dosage: UNK
     Route: 065
  8. ETOPOSIDE [Suspect]
     Active Substance: ETOPOSIDE
     Indication: Gastrointestinal lymphoma
  9. CYCLOPHOSPHAMIDE [Suspect]
     Active Substance: CYCLOPHOSPHAMIDE
     Indication: Plasmablastic lymphoma
     Dosage: UNK
     Route: 065
  10. CYCLOPHOSPHAMIDE [Suspect]
     Active Substance: CYCLOPHOSPHAMIDE
     Indication: Gastrointestinal lymphoma
  11. DOXORUBICIN [Suspect]
     Active Substance: DOXORUBICIN
     Indication: Plasmablastic lymphoma
     Dosage: UNK
     Route: 065
  12. DOXORUBICIN [Suspect]
     Active Substance: DOXORUBICIN
     Indication: Gastrointestinal lymphoma

REACTIONS (3)
  - Haematotoxicity [Unknown]
  - Infection [Unknown]
  - Off label use [Unknown]
